FAERS Safety Report 9384042 (Version 1)
Quarter: 2013Q3

REPORT INFORMATION
  Report Type: Spontaneous
  Country: IT (occurrence: IT)
  Receive Date: 20130705
  Receipt Date: 20130705
  Transmission Date: 20140515
  Serious: Yes (Death, Other)
  Sender: FDA-Public Use
  Company Number: IT-JNJFOC-20130617097

PATIENT
  Sex: 0

DRUGS (5)
  1. DOXORUBICIN [Suspect]
     Indication: TRANSITIONAL CELL CARCINOMA
     Route: 042
  2. CISPLATIN [Suspect]
     Indication: TRANSITIONAL CELL CARCINOMA
     Dosage: ON DAY 2-5
     Route: 065
  3. METHOTREXATE [Suspect]
     Indication: TRANSITIONAL CELL CARCINOMA
     Route: 065
  4. VINBLASTINE [Suspect]
     Indication: TRANSITIONAL CELL CARCINOMA
     Route: 065
  5. GEMCITABINE [Suspect]
     Indication: TRANSITIONAL CELL CARCINOMA
     Route: 065

REACTIONS (7)
  - Toxicity to various agents [Fatal]
  - Neutropenia [Unknown]
  - Nephropathy toxic [Unknown]
  - Thrombocytopenia [Unknown]
  - Anaemia [Unknown]
  - Mucosal inflammation [Unknown]
  - Off label use [Unknown]
